FAERS Safety Report 24194723 (Version 2)
Quarter: 2024Q3

REPORT INFORMATION
  Report Type: Spontaneous
  Country: JP (occurrence: JP)
  Receive Date: 20240809
  Receipt Date: 20240920
  Transmission Date: 20241017
  Serious: No
  Sender: REGENERON
  Company Number: JP-BAYER-2024A114242

PATIENT
  Sex: Male

DRUGS (2)
  1. EYLEA HD [Suspect]
     Active Substance: AFLIBERCEPT
     Indication: Age-related macular degeneration
     Dosage: 0.07 ML, ONCE, RIGHT EYE, 114.3 MG/ML, SOLUTION FOR INJECTION
     Route: 031
     Dates: start: 20240806, end: 20240806
  2. MOXIFLOXACIN HYDROCHLORIDE [Concomitant]
     Active Substance: MOXIFLOXACIN HYDROCHLORIDE\MOXIFLOXACIN HYDROCHLORIDE MONOHYDRATE
     Indication: Product used for unknown indication
     Dosage: RIGHT EYE, QID
     Dates: start: 20240803

REACTIONS (2)
  - Visual impairment [Recovered/Resolved]
  - Vision blurred [Recovered/Resolved]

NARRATIVE: CASE EVENT DATE: 20240806
